FAERS Safety Report 19833348 (Version 3)
Quarter: 2021Q4

REPORT INFORMATION
  Report Type: Spontaneous
  Country: US (occurrence: US)
  Receive Date: 20210915
  Receipt Date: 20211118
  Transmission Date: 20220303
  Serious: Yes (Other)
  Sender: FDA-Public Use
  Company Number: US-AMGEN-USASP2021140347

PATIENT

DRUGS (2)
  1. BEVACIZUMAB [Suspect]
     Active Substance: BEVACIZUMAB
     Indication: Radiation necrosis
     Dosage: 2.5 MG/KG
     Route: 013
  2. BEVACIZUMAB [Suspect]
     Active Substance: BEVACIZUMAB
     Dosage: UNK
     Route: 042

REACTIONS (7)
  - Generalised tonic-clonic seizure [Unknown]
  - Radiation necrosis [Unknown]
  - Diplopia [Unknown]
  - Mental status changes [Unknown]
  - Vision blurred [Unknown]
  - Steroid dependence [Unknown]
  - Off label use [Unknown]
